FAERS Safety Report 8314524-8 (Version None)
Quarter: 2012Q2

REPORT INFORMATION
  Report Type: 
  Country: None (occurrence: None)
  Receive Date: 20120426
  Receipt Date: 20120423
  Transmission Date: 20120825
  Serious: Yes (Hospitalization)
  Sender: FDA-Public Use
  Company Number: US-GILEAD-2012-0054058

PATIENT
  Sex: Female

DRUGS (4)
  1. DIOVAN [Concomitant]
     Indication: BLOOD PRESSURE
  2. IMDUR [Concomitant]
     Indication: BLOOD PRESSURE
  3. COREG [Concomitant]
     Indication: BLOOD PRESSURE
  4. RANOLAZINE [Suspect]
     Indication: CORONARY ARTERY DISEASE
     Dosage: UNK
     Dates: start: 20111213

REACTIONS (4)
  - SYNCOPE [None]
  - HYPOTENSION [None]
  - NAUSEA [None]
  - DIZZINESS [None]
